FAERS Safety Report 13451779 (Version 2)
Quarter: 2017Q2

REPORT INFORMATION
  Report Type: Spontaneous
  Country: US (occurrence: US)
  Receive Date: 20170418
  Receipt Date: 20170510
  Transmission Date: 20170830
  Serious: No
  Sender: FDA-Public Use
  Company Number: US-PFIZER INC-2017164687

PATIENT
  Age: 55 Year
  Sex: Female

DRUGS (1)
  1. IBRANCE [Suspect]
     Active Substance: PALBOCICLIB
     Indication: BREAST CANCER FEMALE
     Dosage: 100 MG, CYCLIC[DAILY FOR 21 DAYS/DAILY ON DAY 1-21]
     Route: 048
     Dates: start: 20170109

REACTIONS (4)
  - Musculoskeletal stiffness [Unknown]
  - Nausea [Unknown]
  - Pruritus [Unknown]
  - Headache [Unknown]

NARRATIVE: CASE EVENT DATE: 20170213
